FAERS Safety Report 10932866 (Version 1)
Quarter: 2015Q1

REPORT INFORMATION
  Report Type: Spontaneous
  Country: US (occurrence: None)
  Receive Date: 20150319
  Receipt Date: 20150319
  Transmission Date: 20150721
  Serious: Yes (Disabling)
  Sender: FDA-Public Use
  Company Number: None

PATIENT
  Sex: Female
  Weight: 54.43 kg

DRUGS (10)
  1. SEROQUEL [Suspect]
     Active Substance: QUETIAPINE FUMARATE
     Indication: BIPOLAR DISORDER
     Route: 048
     Dates: start: 20080513, end: 20150222
  2. ZYREXA [Concomitant]
  3. TRAMADOL [Concomitant]
     Active Substance: TRAMADOL
  4. GABAPENTIN. [Concomitant]
     Active Substance: GABAPENTIN
  5. MULTIVITAMINS [Concomitant]
     Active Substance: VITAMINS
  6. SEROQUEL [Suspect]
     Active Substance: QUETIAPINE FUMARATE
     Indication: SLEEP DISORDER
     Route: 048
     Dates: start: 20080513, end: 20150222
  7. CITALOPRAM [Concomitant]
     Active Substance: CITALOPRAM HYDROBROMIDE
  8. CARISOPRODOL. [Concomitant]
     Active Substance: CARISOPRODOL
  9. XANAX [Concomitant]
     Active Substance: ALPRAZOLAM
  10. EVAIL [Concomitant]

REACTIONS (21)
  - Dizziness [None]
  - Cystitis [None]
  - Constipation [None]
  - Visual impairment [None]
  - Chest pain [None]
  - Panic attack [None]
  - Anxiety [None]
  - Abdominal pain [None]
  - Muscular weakness [None]
  - Oropharyngeal pain [None]
  - Weight increased [None]
  - Movement disorder [None]
  - Thyroid cyst [None]
  - Haematochezia [None]
  - Nightmare [None]
  - Blood urine present [None]
  - Headache [None]
  - Anger [None]
  - Completed suicide [None]
  - Loss of consciousness [None]
  - Hyperhidrosis [None]
